FAERS Safety Report 20790234 (Version 1)
Quarter: 2022Q2

REPORT INFORMATION
  Report Type: Spontaneous
  Country: IT (occurrence: IT)
  Receive Date: 20220505
  Receipt Date: 20220505
  Transmission Date: 20220721
  Serious: Yes (Hospitalization, Other)
  Sender: FDA-Public Use
  Company Number: IT-Accord-261003

PATIENT
  Age: 73 Year
  Sex: Female

DRUGS (3)
  1. CARBOPLATIN [Suspect]
     Active Substance: CARBOPLATIN
     Dosage: Q3W, 5 AUC
     Dates: start: 202103
  2. PEMETREXED [Suspect]
     Active Substance: PEMETREXED
     Dosage: 500 MILLIEQUIVALENT PER SQUAREMETRE, Q3W
     Dates: start: 202103
  3. PEMBROLIZUMAB [Suspect]
     Active Substance: PEMBROLIZUMAB
     Dosage: 200 MG, Q3W
     Dates: start: 202103

REACTIONS (7)
  - Interstitial lung disease [Unknown]
  - Chronic kidney disease [Unknown]
  - Dyspnoea [Unknown]
  - Cough [Unknown]
  - Blood creatinine increased [Unknown]
  - Pleural effusion [Unknown]
  - Neoplasm progression [Unknown]

NARRATIVE: CASE EVENT DATE: 20211101
